FAERS Safety Report 8381805-1 (Version None)
Quarter: 2012Q2

REPORT INFORMATION
  Report Type: 
  Country: None (occurrence: None)
  Receive Date: 20120522
  Receipt Date: 20120522
  Transmission Date: 20120825
  Serious: Yes (Other)
  Sender: FDA-Public Use
  Company Number: None

PATIENT
  Age: 27 Year
  Sex: Male
  Weight: 95.2554 kg

DRUGS (2)
  1. OPANA ER [Suspect]
     Indication: FIBROMYALGIA
     Dosage: 1 PILL EVERY 12 HRS PO
     Route: 048
  2. OPANA ER [Suspect]
     Indication: SPONDYLOARTHROPATHY
     Dosage: 1 PILL EVERY 12 HRS PO
     Route: 048

REACTIONS (4)
  - ABDOMINAL PAIN [None]
  - CONSTIPATION [None]
  - HYPOPNOEA [None]
  - PRODUCT FORMULATION ISSUE [None]
